FAERS Safety Report 9354220 (Version 1)
Quarter: 2013Q2

REPORT INFORMATION
  Report Type: Spontaneous
  Country: JP (occurrence: JP)
  Receive Date: 20130618
  Receipt Date: 20130618
  Transmission Date: 20140414
  Serious: Yes (Other)
  Sender: FDA-Public Use
  Company Number: JP-OTSUKA-JP-2011-11767

PATIENT
  Age: 64 Year
  Sex: Female
  Weight: 47 kg

DRUGS (8)
  1. PLETAAL [Suspect]
     Indication: PERIPHERAL ARTERIAL OCCLUSIVE DISEASE
     Dosage: 100 MG MILLIGRAM(S), BID
     Route: 048
     Dates: start: 20110927, end: 20111004
  2. PLETAAL [Suspect]
     Dosage: 100 MG MILLIGRAM(S), DAILY DOSE
     Route: 048
     Dates: start: 20111116
  3. CRESTOR [Concomitant]
     Indication: DYSLIPIDAEMIA
     Dosage: 2.5 MG MILLIGRAM(S), QD
     Route: 048
     Dates: start: 20090214
  4. CONIEL [Concomitant]
     Indication: HYPERTENSION
     Dosage: 8 MG MILLIGRAM(S), QD
     Route: 048
     Dates: start: 20090420
  5. METGLUCO [Concomitant]
     Indication: DIABETES MELLITUS
     Dosage: 500 MG MILLIGRAM(S), BID
     Route: 048
     Dates: start: 20100929
  6. OMEPRAL [Concomitant]
     Indication: DUODENAL ULCER
     Dosage: 20 MG MILLIGRAM(S), QD
     Route: 048
     Dates: start: 20100929
  7. IRBETAN [Concomitant]
     Indication: HYPERTENSION
     Dosage: 100 MG MILLIGRAM(S), QD
     Route: 048
     Dates: start: 20110119
  8. CELECOX [Concomitant]
     Indication: PAIN IN EXTREMITY
     Dosage: 200 MG MILLIGRAM(S), BID
     Route: 048
     Dates: start: 20110927

REACTIONS (7)
  - Left ventricle outflow tract obstruction [Recovered/Resolved]
  - Left ventricle outflow tract obstruction [Recovered/Resolved]
  - Chest discomfort [Recovered/Resolved]
  - Cardiac murmur [Recovered/Resolved]
  - Malaise [Recovered/Resolved]
  - Palpitations [Recovered/Resolved]
  - Heart rate increased [Unknown]
